FAERS Safety Report 11514503 (Version 4)
Quarter: 2015Q4

REPORT INFORMATION
  Report Type: Spontaneous
  Country: JP (occurrence: JP)
  Receive Date: 20150916
  Receipt Date: 20151002
  Transmission Date: 20160304
  Serious: Yes (Other)
  Sender: FDA-Public Use
  Company Number: JP-GLAXOSMITHKLINE-JP2015GSK128412

PATIENT
  Age: 77 Year
  Sex: Male
  Weight: 48 kg

DRUGS (2)
  1. DOXORUBICIN [Concomitant]
     Active Substance: DOXORUBICIN
     Indication: FIBROSARCOMA
     Dosage: UNK
  2. VOTRIENT [Suspect]
     Active Substance: PAZOPANIB HYDROCHLORIDE
     Indication: FIBROSARCOMA
     Dosage: 800 MG, QD
     Route: 048

REACTIONS (8)
  - Hair colour changes [Unknown]
  - Blood pressure systolic increased [Recovering/Resolving]
  - Hypertension [Unknown]
  - Infectious pleural effusion [Recovered/Resolved]
  - Decreased appetite [Unknown]
  - Fatigue [Unknown]
  - Pleurocutaneous fistula [Recovered/Resolved]
  - Platelet count decreased [Recovered/Resolved]
